FAERS Safety Report 21140532 (Version 2)
Quarter: 2022Q3

REPORT INFORMATION
  Report Type: Spontaneous
  Country: US (occurrence: US)
  Receive Date: 20220728
  Receipt Date: 20220830
  Transmission Date: 20221027
  Serious: No
  Sender: FDA-Public Use
  Company Number: US-BIOGEN-2022BI01143004

PATIENT
  Age: 55 Year
  Sex: Female

DRUGS (1)
  1. TECFIDERA [Suspect]
     Active Substance: DIMETHYL FUMARATE
     Indication: Multiple sclerosis
     Route: 050
     Dates: start: 201809

REACTIONS (5)
  - Urinary tract infection [Unknown]
  - Contusion [Unknown]
  - Fall [Unknown]
  - Balance disorder [Unknown]
  - Flushing [Unknown]

NARRATIVE: CASE EVENT DATE: 20220724
